FAERS Safety Report 25955446 (Version 1)
Quarter: 2025Q4

REPORT INFORMATION
  Report Type: Spontaneous
  Country: US (occurrence: US)
  Receive Date: 20251024
  Receipt Date: 20251024
  Transmission Date: 20260117
  Serious: No
  Sender: NORTHSTAR
  Company Number: US-NORTHSTAR RX LLC-US-2025NSR000006

PATIENT

DRUGS (2)
  1. BACLOFEN [Suspect]
     Active Substance: BACLOFEN
     Indication: Pain
     Dosage: 1 TABLET, BID
     Route: 048
     Dates: start: 20250319
  2. BACLOFEN [Suspect]
     Active Substance: BACLOFEN
     Indication: Muscle spasms

REACTIONS (3)
  - Dyspepsia [Unknown]
  - Product solubility abnormal [Unknown]
  - Drug ineffective [Unknown]
